FAERS Safety Report 24026595 (Version 4)
Quarter: 2024Q3

REPORT INFORMATION
  Report Type: Report from Study
  Country: RS (occurrence: RS)
  Receive Date: 20240628
  Receipt Date: 20240710
  Transmission Date: 20241017
  Serious: No
  Sender: ROCHE
  Company Number: RS-ROCHE-3218554

PATIENT
  Age: 77 Year
  Sex: Male
  Weight: 81.0 kg

DRUGS (10)
  1. ALECTINIB [Suspect]
     Active Substance: ALECTINIB
     Indication: Lung cancer metastatic
     Route: 048
     Dates: start: 20220728
  2. ALECTINIB [Suspect]
     Active Substance: ALECTINIB
     Route: 048
     Dates: start: 20220405
  3. BISOPROLOL FUMARATE [Concomitant]
     Active Substance: BISOPROLOL FUMARATE
     Indication: Hypertension
     Dosage: EVERY OTHER DAY
     Route: 048
  4. HEPALIFE [Concomitant]
     Route: 048
     Dates: start: 20220728
  5. TRODON [Concomitant]
  6. ACETAMINOPHEN [Concomitant]
     Active Substance: ACETAMINOPHEN
  7. ASCORBIC ACID\FERRIC PYROPHOSPHATE [Concomitant]
     Active Substance: ASCORBIC ACID\FERRIC PYROPHOSPHATE
  8. DICLOFENAC [Concomitant]
     Active Substance: DICLOFENAC
  9. LORAZEPAM [Concomitant]
     Active Substance: LORAZEPAM
  10. IBUPROFEN [Concomitant]
     Active Substance: IBUPROFEN

REACTIONS (3)
  - Blood bilirubin increased [Not Recovered/Not Resolved]
  - Blood alkaline phosphatase increased [Recovered/Resolved]
  - Sputum discoloured [Recovered/Resolved]

NARRATIVE: CASE EVENT DATE: 20220916
